FAERS Safety Report 9927131 (Version 1)
Quarter: 2014Q1

REPORT INFORMATION
  Report Type: Spontaneous
  Country: US (occurrence: US)
  Receive Date: 20140226
  Receipt Date: 20140226
  Transmission Date: 20141002
  Serious: No
  Sender: FDA-Public Use
  Company Number: US-AMGEN-USASP2014005252

PATIENT
  Age: 27 Year
  Sex: Female
  Weight: 80.73 kg

DRUGS (6)
  1. ENBREL [Suspect]
     Indication: PRODUCT USED FOR UNKNOWN INDICATION
     Dosage: 50 MG/ML, QWK
     Route: 058
  2. YAZ [Concomitant]
     Dosage: 3-0.02 MG
  3. METHOTREXATE [Concomitant]
     Dosage: 50 MG/2 ML
  4. FOLIC ACID [Concomitant]
     Dosage: UNK
  5. LEUCOVORIN CALCIUM [Concomitant]
     Dosage: UNK
  6. VITAMIN B12                        /00056201/ [Concomitant]
     Dosage: 1000 CR

REACTIONS (1)
  - Joint stiffness [Unknown]
